FAERS Safety Report 8286284-0 (Version None)
Quarter: 2012Q1

REPORT INFORMATION
  Report Type: 
  Country: None (occurrence: None)
  Receive Date: 20120314
  Receipt Date: 20100819
  Transmission Date: 20120608
  Serious: No
  Sender: FDA-Public Use
  Company Number: PHHY2010US56127

PATIENT
  Sex: Female

DRUGS (4)
  1. WELLBUTRIN XL (BUPROPION HYDROCHLORIDE), 300 MG [Concomitant]
  2. LOMMUCTEL, 100 MG [Concomitant]
  3. FANAPT [Suspect]
     Dosage: 1 MG, QHS, ORAL
     Route: 048
  4. ADDERALL 10 [Concomitant]

REACTIONS (4)
  - FEELING ABNORMAL [None]
  - HEADACHE [None]
  - INSOMNIA [None]
  - MUSCULAR WEAKNESS [None]
